FAERS Safety Report 14007249 (Version 1)
Quarter: 2017Q3

REPORT INFORMATION
  Report Type: Spontaneous
  Country: BR (occurrence: BR)
  Receive Date: 20170924
  Receipt Date: 20170924
  Transmission Date: 20171128
  Serious: Yes (Hospitalization, Other)
  Sender: FDA-Public Use
  Company Number: None

PATIENT
  Age: 29 Year
  Sex: Male
  Weight: 77 kg

DRUGS (5)
  1. TENOFOVIR [Concomitant]
     Active Substance: TENOFOVIR
  2. MEBEVERINE [Suspect]
     Active Substance: MEBEVERINE
     Indication: IRRITABLE BOWEL SYNDROME
     Dosage: ?          QUANTITY:1 CAPSULE(S);?
     Route: 048
     Dates: start: 20170918
  3. LAMIVUDINE. [Concomitant]
     Active Substance: LAMIVUDINE
  4. RUBENTI [Suspect]
     Active Substance: UNSPECIFIED INGREDIENT
  5. EFAVIRENZ [Concomitant]
     Active Substance: EFAVIRENZ

REACTIONS (6)
  - Malaise [None]
  - Nausea [None]
  - Weight decreased [None]
  - Decreased appetite [None]
  - Abdominal pain [None]
  - Panic attack [None]

NARRATIVE: CASE EVENT DATE: 20170923
